FAERS Safety Report 4316382-5 (Version None)
Quarter: 2004Q1

REPORT INFORMATION
  Report Type: 
  Country: None (occurrence: None)
  Receive Date: 20040312
  Receipt Date: 20040312
  Transmission Date: 20041129
  Serious: Yes (Other)
  Sender: FDA-Public Use
  Company Number: None

PATIENT
  Age: 64 Year
  Sex: Female
  Weight: 50.3493 kg

DRUGS (1)
  1. ETHYOL [Suspect]
     Indication: TONGUE NEOPLASM MALIGNANT STAGE UNSPECIFIED
     Dosage: 500MG SQ DAILY M-F, 22 DOSES ADMINISTERED DAILY M-F
     Route: 058

REACTIONS (1)
  - RASH [None]
